FAERS Safety Report 12158789 (Version 1)
Quarter: 2016Q1

REPORT INFORMATION
  Report Type: Spontaneous
  Country: US (occurrence: US)
  Receive Date: 20160308
  Receipt Date: 20160308
  Transmission Date: 20160526
  Serious: No
  Sender: FDA-Public Use
  Company Number: US-JNJFOC-20160124960

PATIENT
  Age: 59 Year
  Sex: Male
  Weight: 142.88 kg

DRUGS (1)
  1. TYLENOL EXTRA STRENGTH [Suspect]
     Active Substance: ACETAMINOPHEN
     Indication: ARTHRALGIA
     Dosage: 2 CAPLETS TWICE, 3 HOURS APART
     Route: 048
     Dates: start: 20160129

REACTIONS (1)
  - Incorrect drug administration duration [Unknown]

NARRATIVE: CASE EVENT DATE: 20160129
